FAERS Safety Report 6701082-4 (Version None)
Quarter: 2010Q2

REPORT INFORMATION
  Report Type: 
  Country: None (occurrence: None)
  Receive Date: 20100428
  Receipt Date: 20100428
  Transmission Date: 20101027
  Serious: Yes (Other)
  Sender: FDA-Public Use
  Company Number: None

PATIENT
  Age: 56 Year
  Sex: Female
  Weight: 95.2554 kg

DRUGS (1)
  1. CYMBALTA [Suspect]
     Indication: FIBROMYALGIA
     Dosage: 30 MG 1/DAY PO
     Route: 048
     Dates: start: 20100408, end: 20100414

REACTIONS (5)
  - BLOOD PRESSURE INCREASED [None]
  - DECREASED APPETITE [None]
  - HEART RATE INCREASED [None]
  - INSOMNIA [None]
  - PSYCHOMOTOR HYPERACTIVITY [None]
